FAERS Safety Report 7829293-5 (Version None)
Quarter: 2011Q4

REPORT INFORMATION
  Report Type: 
  Country: None (occurrence: None)
  Receive Date: 20111020
  Receipt Date: 20111012
  Transmission Date: 20120403
  Serious: Yes (Hospitalization)
  Sender: FDA-Public Use
  Company Number: US-CELGENEUS-163-21880-11090621

PATIENT
  Sex: Female
  Weight: 58.112 kg

DRUGS (10)
  1. ASPIRIN [Concomitant]
     Route: 065
  2. CETIRIZINE HCL [Concomitant]
     Route: 065
  3. RED BLOOD CELLS [Concomitant]
     Dosage: 4 UNITS
     Route: 041
     Dates: start: 20110121, end: 20110121
  4. REVLIMID [Suspect]
     Indication: MYELOFIBROSIS
     Dosage: 10 MILLIGRAM
     Route: 048
     Dates: start: 20101019
  5. PREDNISONE [Concomitant]
     Indication: MYELOFIBROSIS
     Dosage: 10 MILLIGRAM
     Route: 048
     Dates: start: 20110118
  6. REVLIMID [Suspect]
     Dosage: 10 MILLIGRAM
     Route: 048
     Dates: start: 20110118
  7. NEXIUM [Concomitant]
     Route: 065
  8. LASIX [Concomitant]
     Route: 065
  9. BONIVA [Concomitant]
     Route: 065
  10. LOVAZA [Concomitant]
     Route: 065

REACTIONS (2)
  - PLATELET COUNT INCREASED [None]
  - BALANCE DISORDER [None]
